FAERS Safety Report 7189747-4 (Version None)
Quarter: 2010Q4

REPORT INFORMATION
  Report Type: 
  Country: None (occurrence: None)
  Receive Date: 20101223
  Receipt Date: 20101215
  Transmission Date: 20110411
  Serious: No
  Sender: FDA-Public Use
  Company Number: US-BIOGENIDEC-2010BI044170

PATIENT
  Age: 44 Year
  Sex: Female

DRUGS (1)
  1. TYSABRI [Suspect]
     Indication: MULTIPLE SCLEROSIS
     Route: 042
     Dates: start: 20100930, end: 20100101

REACTIONS (5)
  - ASTHMA [None]
  - CHEST DISCOMFORT [None]
  - COUGH [None]
  - HYPERSENSITIVITY [None]
  - UPPER RESPIRATORY TRACT INFECTION [None]
